FAERS Safety Report 16311963 (Version 1)
Quarter: 2019Q2

REPORT INFORMATION
  Report Type: Spontaneous
  Country: US (occurrence: US)
  Receive Date: 20190515
  Receipt Date: 20190515
  Transmission Date: 20190711
  Serious: Yes (Hospitalization, Other)
  Sender: FDA-Public Use
  Company Number: US-ACCORD-126899

PATIENT
  Age: 56 Year
  Sex: Male

DRUGS (1)
  1. CARBIDOPA/LEVODOPA [Suspect]
     Active Substance: CARBIDOPA\LEVODOPA
     Indication: PARKINSON^S DISEASE
     Dosage: HIGH DOSE, 3 TABLET, FROM 1 TABLET 5 TIMES A DAY TO 1 TABLET 4 TIMES A DAY

REACTIONS (4)
  - Suicide attempt [Unknown]
  - Impulsive behaviour [Recovered/Resolved]
  - Anger [Recovered/Resolved]
  - Hypersexuality [Recovered/Resolved]
